FAERS Safety Report 25884759 (Version 2)
Quarter: 2025Q4

REPORT INFORMATION
  Report Type: Report from Study
  Country: US (occurrence: US)
  Receive Date: 20251006
  Receipt Date: 20251222
  Transmission Date: 20260118
  Serious: No
  Sender: MALLINCKRODT
  Company Number: US-MALLINCKRODT-MNK202505756

PATIENT
  Sex: Male

DRUGS (1)
  1. CORTICOTROPIN [Suspect]
     Active Substance: CORTICOTROPIN
     Indication: Product used for unknown indication
     Dosage: UNKNOWN

REACTIONS (6)
  - Dry eye [Unknown]
  - Eye pain [Unknown]
  - Eye pruritus [Unknown]
  - Eye irritation [Unknown]
  - Blood pressure increased [Not Recovered/Not Resolved]
  - Injection site haemorrhage [Unknown]
